FAERS Safety Report 8254728-6 (Version None)
Quarter: 2012Q1

REPORT INFORMATION
  Report Type: 
  Country: None (occurrence: None)
  Receive Date: 20120322
  Receipt Date: 20111218
  Transmission Date: 20120608
  Serious: Yes (Hospitalization)
  Sender: FDA-Public Use
  Company Number: UTC-013667

PATIENT
  Age: 61 Year
  Sex: Female
  Weight: 90.9 kg

DRUGS (6)
  1. DIURETICS (DIURETICS) [Concomitant]
  2. ASPIRIN [Concomitant]
  3. TYVASO [Suspect]
     Indication: PULMONARY ARTERIAL HYPERTENSION
     Dosage: 18-54 MICROGRAMS (4 IN 1 D), INHALATION
     Route: 055
     Dates: start: 20111010
  4. LETAIRIS [Concomitant]
  5. OXYGEN (OXYGEN) [Concomitant]
  6. RAPAMUNE [Concomitant]

REACTIONS (6)
  - RESPIRATORY DISORDER [None]
  - OXYGEN SATURATION DECREASED [None]
  - TREMOR [None]
  - HYPOTENSION [None]
  - DIZZINESS [None]
  - PULMONARY VENO-OCCLUSIVE DISEASE [None]
